FAERS Safety Report 4293395-3 (Version None)
Quarter: 2004Q1

REPORT INFORMATION
  Report Type: 
  Country: None (occurrence: None)
  Receive Date: 20040126
  Receipt Date: 20031111
  Transmission Date: 20041129
  Serious: No
  Sender: FDA-Public Use
  Company Number: USA031151721

PATIENT
  Age: 56 Year
  Sex: Female
  Weight: 82 kg

DRUGS (2)
  1. FORTEO [Suspect]
     Indication: OSTEOPOROSIS
     Dates: start: 20031103
  2. ACTONEL [Concomitant]

REACTIONS (8)
  - BREATH ODOUR [None]
  - DYSGEUSIA [None]
  - FEELING ABNORMAL [None]
  - GASTROOESOPHAGEAL REFLUX DISEASE [None]
  - NAUSEA [None]
  - OESOPHAGEAL PAIN [None]
  - PAROSMIA [None]
  - URINE ANALYSIS ABNORMAL [None]
